FAERS Safety Report 24928260 (Version 1)
Quarter: 2025Q1

REPORT INFORMATION
  Report Type: Spontaneous
  Country: US (occurrence: None)
  Receive Date: 20250205
  Receipt Date: 20250205
  Transmission Date: 20250409
  Serious: Yes (Hospitalization)
  Sender: FDA-CTU
  Company Number: None

PATIENT
  Age: 60 Year
  Sex: Female
  Weight: 81.19 kg

DRUGS (3)
  1. WINREVAIR [Suspect]
     Active Substance: SOTATERCEPT-CSRK
     Indication: Pulmonary arterial hypertension
     Dosage: OTHER QUANTITY : 0.5 ML  THEN INCREASE TO 1.1 ML;?FREQUENCY : 3 TIMES A DAY;?
     Route: 058
     Dates: start: 202406
  2. COUMADIN [Suspect]
     Active Substance: WARFARIN SODIUM
  3. ASPIRIN [Suspect]
     Active Substance: ASPIRIN

REACTIONS (2)
  - Gastrointestinal haemorrhage [None]
  - Epistaxis [None]

NARRATIVE: CASE EVENT DATE: 20240901
